FAERS Safety Report 8075321-4 (Version None)
Quarter: 2012Q1

REPORT INFORMATION
  Report Type: 
  Country: None (occurrence: None)
  Receive Date: 20120127
  Receipt Date: 20120124
  Transmission Date: 20120608
  Serious: Yes (Death, Hospitalization)
  Sender: FDA-Public Use
  Company Number: JP-JNJFOC-20110903859

PATIENT
  Age: 29 Year

DRUGS (8)
  1. RISPERDAL CONSTA [Suspect]
     Route: 030
     Dates: start: 20110901
  2. RISPERIDONE [Suspect]
     Indication: SCHIZOPHRENIA
     Route: 065
  3. VALPROATE SODIUM [Concomitant]
     Route: 048
  4. RISPERDAL CONSTA [Suspect]
     Indication: SCHIZOPHRENIA
     Route: 030
     Dates: end: 20110831
  5. ACTOS [Concomitant]
     Indication: DIABETES MELLITUS
     Route: 048
  6. ZOTEPINE [Suspect]
     Indication: SCHIZOPHRENIA
     Route: 048
  7. LONASEN [Suspect]
     Indication: SCHIZOPHRENIA
     Route: 048
  8. LITHIUM CARBONATE [Concomitant]
     Route: 048

REACTIONS (1)
  - ACUTE MYOCARDIAL INFARCTION [None]
